FAERS Safety Report 10386845 (Version 1)
Quarter: 2014Q1

REPORT INFORMATION
  Report Type: Spontaneous
  Country: US (occurrence: None)
  Receive Date: 20140306
  Receipt Date: 20140306
  Transmission Date: 20141002
  Serious: Yes (Other)
  Sender: FDA-Public Use
  Company Number: 163-21880-13061952

PATIENT
  Age: 74 Year
  Sex: Male
  Weight: 74.4 kg

DRUGS (24)
  1. REVLIMID (LENALIDOMIDE) (15 MILLIGRAM, CAPSULES) [Suspect]
     Indication: PLASMA CELL MYELOMA
     Dosage: 21 IN 28 D, PO
     Route: 048
     Dates: start: 20130410
  2. REVLIMID (LENALIDOMIDE) (15 MILLIGRAM, CAPSULES) [Suspect]
     Indication: RENAL FAILURE CHRONIC
     Dosage: 21 IN 28 D, PO
     Route: 048
     Dates: start: 20130410
  3. SINGULAIR (MONTELUKAST) 10MG [Concomitant]
  4. DEXAMETHASONE [Concomitant]
  5. WARFARIN SODIUM [Concomitant]
  6. VITAMIN B12 (CYANOCOBALAMIN) [Concomitant]
  7. ALPHA LIPOIC ACID (THIOCTIC ACID) [Concomitant]
  8. SUPER B COMPLEX (BECOSYM FORTE) [Concomitant]
  9. RENVELA (SEVELAMER CARBONATE) [Concomitant]
  10. BACLOFEN [Concomitant]
  11. MULTIVITAMINS [Concomitant]
  12. PROPRANOLOL HCL (PROPRANOLOL HYDROCHLORIDE) [Concomitant]
  13. VICODIN [Concomitant]
  14. TYLENOL/CODEINE (PANADEINE CO) [Concomitant]
  15. CALCITRATE + D (CALCIUM) [Concomitant]
  16. NIACIN (NICOTINIC ACID) [Concomitant]
  17. PHENOBARBITAL [Concomitant]
  18. BELLADONNA AND OPIUM [Concomitant]
  19. GLYBURIDE (GLIBENCLAMIDE) [Concomitant]
  20. RENAGEL (SEVELAMER HYDROCHLORIDE) [Concomitant]
  21. OMEPRAZOLE [Concomitant]
  22. CYCLOBENZAPRINE HCL (CYCLOBENZAPRINE HYDROCHLORIDE) [Concomitant]
  23. NEURONTIN (GABAPENTIN) [Concomitant]
  24. IRON [Concomitant]

REACTIONS (5)
  - Localised infection [None]
  - Pruritus [None]
  - Muscle spasms [None]
  - Anaemia [None]
  - Urticaria [None]
